FAERS Safety Report 16132677 (Version 1)
Quarter: 2019Q1

REPORT INFORMATION
  Report Type: Spontaneous
  Country: US (occurrence: US)
  Receive Date: 20190329
  Receipt Date: 20190329
  Transmission Date: 20190418
  Serious: No
  Sender: FDA-Public Use
  Company Number: US-ASTRAZENECA-2019SE45250

PATIENT
  Age: 26720 Day
  Sex: Female
  Weight: 61.7 kg

DRUGS (10)
  1. METOPROLOL TARTRATE. [Suspect]
     Active Substance: METOPROLOL TARTRATE
     Indication: HYPERTENSION
     Route: 048
     Dates: start: 201405
  2. ROSUVASTATIN. [Suspect]
     Active Substance: ROSUVASTATIN
     Indication: INFLAMMATION
     Route: 048
  3. ATROVENT HFA [Concomitant]
     Active Substance: IPRATROPIUM BROMIDE
     Dosage: 2GR TWO TIMES A DAY
     Route: 055
     Dates: start: 2016
  4. LAMICTAL [Concomitant]
     Active Substance: LAMOTRIGINE
     Indication: BIPOLAR II DISORDER
     Route: 048
     Dates: start: 2000
  5. LIPITOR [Concomitant]
     Active Substance: ATORVASTATIN CALCIUM
     Indication: INFLAMMATION
     Route: 048
     Dates: start: 201808
  6. CANDESARTAN CILEXETIL. [Suspect]
     Active Substance: CANDESARTAN CILEXETIL
     Indication: HYPERTENSION
     Route: 048
     Dates: start: 2018
  7. FASLODEX [Suspect]
     Active Substance: FULVESTRANT
     Indication: INVASIVE BREAST CARCINOMA
     Route: 030
     Dates: start: 20190314
  8. L-ARGENINE [Concomitant]
     Indication: VASODILATATION
     Route: 048
  9. ROSUVASTATIN. [Suspect]
     Active Substance: ROSUVASTATIN
     Indication: INFLAMMATION
     Route: 048
     Dates: start: 20190226
  10. ARMOUR THYROID [Concomitant]
     Active Substance: THYROID, PORCINE
     Indication: HYPOTHYROIDISM
     Route: 048
     Dates: start: 2000

REACTIONS (8)
  - Lethargy [Not Recovered/Not Resolved]
  - Fatigue [Unknown]
  - Wrong technique in product usage process [Unknown]
  - Anxiety [Not Recovered/Not Resolved]
  - Hot flush [Not Recovered/Not Resolved]
  - Dry mouth [Unknown]
  - Off label use [Unknown]
  - Product use in unapproved indication [Unknown]

NARRATIVE: CASE EVENT DATE: 20190315
